FAERS Safety Report 24367703 (Version 1)
Quarter: 2024Q3

REPORT INFORMATION
  Report Type: Spontaneous
  Country: US (occurrence: US)
  Receive Date: 20240926
  Receipt Date: 20240926
  Transmission Date: 20241016
  Serious: No
  Sender: BIOGEN
  Company Number: US-BIOGEN-2024BI01283021

PATIENT
  Age: 31 Year
  Sex: Female

DRUGS (1)
  1. ZURZUVAE [Suspect]
     Active Substance: ZURANOLONE
     Indication: Product used for unknown indication
     Dosage: 2 (25 MG) CAPSULES BY MOUTH EVERY EVENING (TOTAL: 50 MG)
     Route: 050
     Dates: start: 20240909, end: 202409

REACTIONS (5)
  - Brain fog [Unknown]
  - Bradyphrenia [Unknown]
  - Irritability [Unknown]
  - Mood swings [Unknown]
  - Drug ineffective [Unknown]

NARRATIVE: CASE EVENT DATE: 20240915
